FAERS Safety Report 4498021-6 (Version None)
Quarter: 2004Q4

REPORT INFORMATION
  Report Type: 
  Country: None (occurrence: None)
  Receive Date: 20041109
  Receipt Date: 20041109
  Transmission Date: 20050328
  Serious: Yes (Hospitalization)
  Sender: FDA-Public Use
  Company Number: None

PATIENT
  Age: 55 Year
  Sex: Male

DRUGS (2)
  1. HYDROMORPHONE HCL [Suspect]
     Dosage: 0.5 MG IV
     Route: 042
  2. MORPHINE [Suspect]
     Dosage: 60 MG SR

REACTIONS (1)
  - HYPOTENSION [None]
